FAERS Safety Report 9586233 (Version 2)
Quarter: 2013Q4

REPORT INFORMATION
  Report Type: Spontaneous
  Country: CN (occurrence: CN)
  Receive Date: 20131003
  Receipt Date: 20131015
  Transmission Date: 20140711
  Serious: Yes (Hospitalization, Other)
  Sender: FDA-Public Use
  Company Number: CN-RANBAXY-2013RR-73703

PATIENT
  Age: 11 Year
  Sex: Female

DRUGS (1)
  1. PARACETAMOL [Suspect]
     Indication: NASOPHARYNGITIS
     Dosage: 0.25 G, SINGLE
     Route: 048
     Dates: start: 20110827, end: 20110827

REACTIONS (3)
  - Acute hepatic failure [Recovering/Resolving]
  - Hepatic encephalopathy [Recovering/Resolving]
  - Rash papular [Recovering/Resolving]
